FAERS Safety Report 14122240 (Version 3)
Quarter: 2019Q1

REPORT INFORMATION
  Report Type: Spontaneous
  Country: US (occurrence: US)
  Receive Date: 20171024
  Receipt Date: 20190303
  Transmission Date: 20190417
  Serious: No
  Sender: FDA-Public Use
  Company Number: US-IMPAX LABORATORIES, INC-2017-IPXL-02880

PATIENT
  Sex: Male

DRUGS (3)
  1. RYTARY [Suspect]
     Active Substance: CARBIDOPA\LEVODOPA
     Dosage: 61.25/245 MG, 1 DF (INSTEAD OF 3 DF)
     Route: 065
  2. RYTARY [Suspect]
     Active Substance: CARBIDOPA\LEVODOPA
     Indication: PARKINSON^S DISEASE
     Dosage: 61.25/245MG; 3 DF, QID
     Route: 065
  3. RYTARY [Suspect]
     Active Substance: CARBIDOPA\LEVODOPA
     Dosage: UNK, 3 TABLETS A DAY, 1 IN BREAKFAST, 1 IN LUNCH AND 2 TABLETS IN DINNER, OVERALL 8 TABLETS A DAY
     Route: 065

REACTIONS (3)
  - Accidental underdose [Unknown]
  - Labelled drug-food interaction medication error [Unknown]
  - Prescribed overdose [Unknown]
